FAERS Safety Report 9276022 (Version 1)
Quarter: 2013Q2

REPORT INFORMATION
  Report Type: Spontaneous
  Country: US (occurrence: US)
  Receive Date: 20130507
  Receipt Date: 20130507
  Transmission Date: 20140414
  Serious: No
  Sender: FDA-Public Use
  Company Number: US-009507513-1305USA002270

PATIENT
  Sex: Female

DRUGS (1)
  1. FOLLISTIM AQ [Suspect]
     Indication: INFERTILITY
     Dosage: 900 CATRIDGE, 150 MG, ONCE DAILY
     Route: 059

REACTIONS (1)
  - Maternal exposure before pregnancy [Unknown]
